FAERS Safety Report 8889085 (Version 2)
Quarter: 2013Q2

REPORT INFORMATION
  Report Type: Spontaneous
  Country: US (occurrence: US)
  Receive Date: 20121106
  Receipt Date: 20130528
  Transmission Date: 20140414
  Serious: Yes (Hospitalization, Disabling)
  Sender: FDA-Public Use
  Company Number: US-UCBSA-070105

PATIENT
  Age: 24 Year
  Sex: Female

DRUGS (5)
  1. CIMZIA [Suspect]
     Indication: CROHN^S DISEASE
     Dosage: (PER MD REQUEST) PER OR ORDERS ON FILE 400 MG EVERY 4 WEEKS
     Dates: start: 20120507
  2. PREDNISONE [Concomitant]
     Dosage: 40 MG
     Dates: start: 20120511
  3. ATENOLOL [Concomitant]
     Dosage: DAILY DOSE: 25 MG
     Dates: end: 201210
  4. 6 MP [Concomitant]
     Indication: CROHN^S DISEASE
     Dosage: UNKNOWN DOSE
  5. 6 MP [Concomitant]
     Indication: CROHN^S DISEASE
     Dosage: 75 MG
     Dates: start: 20130419

REACTIONS (4)
  - Transfusion [Unknown]
  - Arthralgia [Recovered/Resolved]
  - Joint stiffness [Not Recovered/Not Resolved]
  - Heart rate increased [Not Recovered/Not Resolved]
